FAERS Safety Report 11227722 (Version 1)
Quarter: 2015Q2

REPORT INFORMATION
  Report Type: Spontaneous
  Country: FR (occurrence: FR)
  Receive Date: 20150630
  Receipt Date: 20150630
  Transmission Date: 20150821
  Serious: Yes (Death)
  Sender: FDA-Public Use
  Company Number: FR-SA-2015SA090786

PATIENT
  Age: 80 Year
  Sex: Male

DRUGS (5)
  1. TAHOR [Concomitant]
     Active Substance: ATORVASTATIN CALCIUM
  2. BISOCE [Concomitant]
     Active Substance: BISOPROLOL
  3. IOMERON [Suspect]
     Active Substance: IOMEPROL
     Indication: COMPUTERISED TOMOGRAM THORAX
     Route: 042
     Dates: start: 20140930, end: 20140930
  4. INEXIUM [Concomitant]
     Active Substance: ESOMEPRAZOLE
  5. LASILIX SPECIAL [Suspect]
     Active Substance: FUROSEMIDE
     Indication: CHRONIC KIDNEY DISEASE
     Dosage: STRENGTH: 500 MG, FORM DIVISIBLE TABLET
     Route: 048
     Dates: end: 201410

REACTIONS (1)
  - Chronic kidney disease [Fatal]

NARRATIVE: CASE EVENT DATE: 20141001
